FAERS Safety Report 9319121 (Version 1)
Quarter: 2013Q2

REPORT INFORMATION
  Report Type: Spontaneous
  Country: US (occurrence: US)
  Receive Date: 20130530
  Receipt Date: 20130530
  Transmission Date: 20140414
  Serious: Yes (Other)
  Sender: FDA-Public Use
  Company Number: US-SANOFI-AVENTIS-2013SA054517

PATIENT
  Age: 64 Year
  Sex: Female

DRUGS (3)
  1. MULTAQ [Suspect]
     Route: 048
  2. PARAPLATIN [Concomitant]
  3. PACLITAXEL [Concomitant]

REACTIONS (1)
  - Atrial fibrillation [Unknown]
